FAERS Safety Report 6239174-9 (Version None)
Quarter: 2009Q2

REPORT INFORMATION
  Report Type: 
  Country: None (occurrence: None)
  Receive Date: 20090622
  Receipt Date: 20090605
  Transmission Date: 20091009
  Serious: No
  Sender: FDA-Public Use
  Company Number: US-B.I. PHARMACEUTICALS,INC./RIDGEFIELD-2009-BP-06992BP

PATIENT
  Sex: Female

DRUGS (2)
  1. MICARDIS [Suspect]
  2. LIPITOR [Concomitant]

REACTIONS (1)
  - MUSCULOSKELETAL PAIN [None]
